FAERS Safety Report 25338077 (Version 1)
Quarter: 2025Q2

REPORT INFORMATION
  Report Type: Spontaneous
  Country: US (occurrence: US)
  Receive Date: 20250520
  Receipt Date: 20250520
  Transmission Date: 20250717
  Serious: Yes (Other)
  Sender: MYLAN
  Company Number: US-MYLANLABS-2025M1041633

PATIENT
  Age: 91 Year
  Sex: Male

DRUGS (2)
  1. ATENOLOL [Suspect]
     Active Substance: ATENOLOL
     Indication: Hypertrophic cardiomyopathy
  2. ATENOLOL [Suspect]
     Active Substance: ATENOLOL
     Indication: Cardiac disorder

REACTIONS (1)
  - Drug ineffective [Unknown]
